FAERS Safety Report 6575141-3 (Version None)
Quarter: 2010Q1

REPORT INFORMATION
  Report Type: 
  Country: None (occurrence: None)
  Receive Date: 20100209
  Receipt Date: 20100202
  Transmission Date: 20100710
  Serious: Yes (Hospitalization)
  Sender: FDA-Public Use
  Company Number: IT-TEVA-222646ISR

PATIENT
  Sex: Male

DRUGS (7)
  1. LANSOPRAZOLE [Suspect]
     Indication: PROPHYLAXIS AGAINST GASTROINTESTINAL ULCER
     Route: 048
     Dates: start: 20090713, end: 20100125
  2. GEMCITABINE [Suspect]
     Indication: BLADDER CANCER
     Route: 042
     Dates: start: 20090713, end: 20091112
  3. CARBOPLATIN [Suspect]
     Indication: BLADDER CANCER
     Route: 042
     Dates: start: 20091001, end: 20091112
  4. ATENOLOL [Concomitant]
     Route: 048
  5. PRINZIDE [Concomitant]
     Route: 048
  6. ISOSORBIDE MONONITRATE [Concomitant]
     Route: 048
  7. PREDNISONE [Concomitant]
     Route: 048

REACTIONS (1)
  - BONE MARROW FAILURE [None]
